FAERS Safety Report 6690577 (Version 3)
Quarter: 2012Q4

REPORT INFORMATION
  Report Type: 
  Country: CA (occurrence: CA)
  Receive Date: 20080703
  Receipt Date: 20121017
  Transmission Date: 20130627
  Serious: Yes (Hospitalization)
  Sender: FDA-Public Use
  Company Number: PHHY2008CA05657

PATIENT
  Age: 65 Year
  Sex: Female

DRUGS (11)
  1. SANDOSTATIN LAR [Suspect]
     Indication: ACROMEGALY
     Dosage: 10 mg, QMO
     Route: 030
     Dates: start: 20080104, end: 20080327
  2. SANDOSTATIN LAR [Suspect]
     Dosage: 20 mg, QMO
     Route: 030
     Dates: start: 20080328
  3. INSULIN [Concomitant]
     Indication: BLOOD GLUCOSE FLUCTUATION
  4. METFORMIN [Concomitant]
     Dosage: 500 mg, BID
  5. GLUCONORM [Concomitant]
     Dosage: 3 mg, TID
  6. GLUCONORM [Concomitant]
     Dosage: 2 mg, TID
  7. RAMIPRIL [Concomitant]
     Dosage: 5 mg, QD
  8. NOVO-DOCUSATE [Concomitant]
     Dosage: 100 mg, BID
  9. ASA [Concomitant]
     Dosage: 81 mg, QD
  10. DILTIAZEM [Concomitant]
  11. ACTOS [Concomitant]
     Dosage: 45 mg, QD
     Route: 048

REACTIONS (4)
  - Urinary tract infection [Unknown]
  - Blood glucose fluctuation [Recovered/Resolved]
  - Blood glucose increased [Recovered/Resolved]
  - Injection site pain [Unknown]
